FAERS Safety Report 12482009 (Version 1)
Quarter: 2016Q2

REPORT INFORMATION
  Report Type: Spontaneous
  Country: JP (occurrence: JP)
  Receive Date: 20160620
  Receipt Date: 20160620
  Transmission Date: 20160815
  Serious: Yes (Death)
  Sender: FDA-Public Use
  Company Number: PHJP1997JP001281

PATIENT
  Age: 41 Year
  Sex: Male

DRUGS (3)
  1. IMURAN//AZATHIOPRINE [Concomitant]
     Indication: PROPHYLAXIS AGAINST TRANSPLANT REJECTION
     Route: 048
  2. PREDONINE//PREDNISOLONE ACETATE [Concomitant]
     Indication: PROPHYLAXIS AGAINST TRANSPLANT REJECTION
     Route: 048
  3. SANDIMMUN SIM+SOLINF [Suspect]
     Active Substance: CYCLOSPORINE
     Indication: PROPHYLAXIS AGAINST TRANSPLANT REJECTION
     Route: 048

REACTIONS (4)
  - Metastases to bone [Unknown]
  - Death [Fatal]
  - Renal cell carcinoma [Unknown]
  - Metastases to liver [Unknown]
